FAERS Safety Report 25117127 (Version 1)
Quarter: 2025Q1

REPORT INFORMATION
  Report Type: Spontaneous
  Country: GB (occurrence: GB)
  Receive Date: 20250325
  Receipt Date: 20250325
  Transmission Date: 20250409
  Serious: Yes (Other)
  Sender: GENMAB
  Company Number: GB-ABBVIE-6186180

PATIENT
  Age: 59 Year
  Sex: Female

DRUGS (1)
  1. EPCORITAMAB [Suspect]
     Active Substance: EPCORITAMAB
     Indication: Diffuse large B-cell lymphoma
     Route: 058
     Dates: start: 202307

REACTIONS (5)
  - Small intestinal resection [Unknown]
  - Abdominal mass [Unknown]
  - Dyspepsia [Unknown]
  - COVID-19 [Recovered/Resolved]
  - Pneumonitis [Unknown]
